FAERS Safety Report 8268302-9 (Version None)
Quarter: 2012Q2

REPORT INFORMATION
  Report Type: 
  Country: None (occurrence: None)
  Receive Date: 20120409
  Receipt Date: 20120330
  Transmission Date: 20120825
  Serious: Yes (Other)
  Sender: FDA-Public Use
  Company Number: PHHY2012AU028427

PATIENT
  Age: 27 Year
  Sex: Female

DRUGS (7)
  1. PREDNISONE [Concomitant]
     Dosage: 10 MG, QD
  2. PREDNISONE [Concomitant]
     Dosage: 2.5 MG, QD
  3. PREDNISONE [Concomitant]
     Dosage: 1 MG, QD
  4. ADALIMUMAB [Suspect]
     Dosage: UNK
     Dates: start: 20040901
  5. METHOTREXATE [Suspect]
     Dosage: 20 MG, QW
  6. METHOTREXATE [Suspect]
     Indication: RHEUMATOID ARTHRITIS
     Dosage: 12.5 MG, QW
  7. LEFLUNOMIDE [Concomitant]
     Dosage: 20 MG, QD

REACTIONS (11)
  - GRANULOMA [None]
  - DYSPNOEA [None]
  - ARTHRALGIA [None]
  - SARCOIDOSIS [None]
  - LYMPHADENITIS [None]
  - RASH ERYTHEMATOUS [None]
  - PYREXIA [None]
  - WEIGHT DECREASED [None]
  - COUGH [None]
  - NIGHT SWEATS [None]
  - ERYTHEMA NODOSUM [None]
